FAERS Safety Report 21530546 (Version 1)
Quarter: 2022Q4

REPORT INFORMATION
  Report Type: Spontaneous
  Country: US (occurrence: None)
  Receive Date: 20221028
  Receipt Date: 20221028
  Transmission Date: 20230113
  Serious: Yes (Other)
  Sender: FDA-Public Use
  Company Number: None

PATIENT

DRUGS (3)
  1. FUROSEMIDE [Suspect]
     Active Substance: FUROSEMIDE
  2. GLIMEPIRIDE [Suspect]
     Active Substance: GLIMEPIRIDE
  3. METOPROLOL [Suspect]
     Active Substance: METOPROLOL

REACTIONS (2)
  - Fall [None]
  - Limb injury [None]

NARRATIVE: CASE EVENT DATE: 20211221
